FAERS Safety Report 7126048-4 (Version None)
Quarter: 2010Q4

REPORT INFORMATION
  Report Type: 
  Country: None (occurrence: None)
  Receive Date: 20101129
  Receipt Date: 20101119
  Transmission Date: 20110411
  Serious: Yes (Other)
  Sender: FDA-Public Use
  Company Number: US-PFIZER INC-2010154409

PATIENT
  Age: 48 Year
  Sex: Male

DRUGS (1)
  1. GEODON [Suspect]
     Dosage: 160MG PER DAY

REACTIONS (1)
  - NOCTURNAL DYSPNOEA [None]
